FAERS Safety Report 17544312 (Version 2)
Quarter: 2020Q2

REPORT INFORMATION
  Report Type: Spontaneous
  Country: US (occurrence: US)
  Receive Date: 20200316
  Receipt Date: 20200508
  Transmission Date: 20200713
  Serious: Yes (Other)
  Sender: FDA-Public Use
  Company Number: US-BRISTOL-MYERS SQUIBB COMPANY-BMS-2020-022110

PATIENT
  Sex: Male

DRUGS (2)
  1. PREPARATION H [PHENYLEPHRINE HYDROCHLORIDE;SHARK-LIVER OIL;THEOBROMA C [Suspect]
     Active Substance: COCOA BUTTER\PHENYLEPHRINE HYDROCHLORIDE\SHARK LIVER OIL
     Indication: HAEMORRHOIDS
     Dosage: UNK
     Route: 065
  2. ELIQUIS [Suspect]
     Active Substance: APIXABAN
     Indication: PRODUCT USED FOR UNKNOWN INDICATION
     Dosage: 5 MILLIGRAM, BID
     Route: 065

REACTIONS (2)
  - Constipation [Unknown]
  - Haemorrhage [Not Recovered/Not Resolved]
